FAERS Safety Report 22304082 (Version 1)
Quarter: 2023Q2

REPORT INFORMATION
  Report Type: Spontaneous
  Country: CZ (occurrence: CZ)
  Receive Date: 20230510
  Receipt Date: 20230510
  Transmission Date: 20230721
  Serious: Yes (Hospitalization, Other)
  Sender: FDA-Public Use
  Company Number: CZ-Accord-304790

PATIENT
  Age: 73 Year
  Sex: Female
  Weight: 60 kg

DRUGS (29)
  1. GEMCITABINE [Suspect]
     Active Substance: GEMCITABINE
     Indication: Product used for unknown indication
     Dosage: 1000 MILLIGRAM/SQ. METER, 1Q2W
     Route: 065
     Dates: start: 20230223, end: 20230223
  2. GEMCITABINE [Suspect]
     Active Substance: GEMCITABINE
     Dosage: 1000 MILLIGRAM/SQ. METER, 1Q2W
     Route: 065
     Dates: start: 20230309, end: 20230309
  3. OXALIPLATIN [Suspect]
     Active Substance: OXALIPLATIN
     Indication: Product used for unknown indication
     Dosage: 100 MILLIGRAM, 1Q2W
     Route: 065
     Dates: start: 20230223, end: 20230223
  4. OXALIPLATIN [Suspect]
     Active Substance: OXALIPLATIN
     Dosage: 100 MILLIGRAM/SQ. METER
     Route: 065
     Dates: start: 20230309, end: 20230309
  5. EPCORITAMAB [Suspect]
     Active Substance: EPCORITAMAB
     Indication: Product used for unknown indication
     Dosage: 0.16 MILLIGRAM, QD, PRIMING DOSE, SINGLE
     Route: 058
     Dates: start: 20230223, end: 20230223
  6. EPCORITAMAB [Suspect]
     Active Substance: EPCORITAMAB
     Dosage: 0.8 MILLIGRAM, QD, INTERMEDIATE DOSE, SINGLE
     Route: 058
     Dates: start: 20230302, end: 20230302
  7. EPCORITAMAB [Suspect]
     Active Substance: EPCORITAMAB
     Dosage: 48 MILLIGRAM, QW, 48 MILLIGRAM, FULL DOSE, WEEKL
     Route: 058
     Dates: start: 20230309, end: 20230309
  8. PREDNISONE [Concomitant]
     Active Substance: PREDNISONE
     Dosage: 100 MILLIGRAM
     Route: 048
     Dates: start: 20230224, end: 20230226
  9. PREDNISONE [Concomitant]
     Active Substance: PREDNISONE
     Dosage: 100 MILLIGRAM
     Route: 048
     Dates: start: 20230303, end: 20230305
  10. LACTULOSE [Concomitant]
     Active Substance: LACTULOSE
     Dosage: UNK
     Route: 065
     Dates: start: 2021
  11. FENTANYL [Concomitant]
     Active Substance: FENTANYL
     Dosage: UNK
     Route: 065
     Dates: start: 202211
  12. NADROPARIN CALCIUM [Concomitant]
     Active Substance: NADROPARIN CALCIUM
     Dosage: UNK
     Route: 065
     Dates: start: 202210
  13. SOLU-MEDROL [Concomitant]
     Active Substance: METHYLPREDNISOLONE SODIUM SUCCINATE
     Dosage: 80 MILLIGRAM
     Route: 065
     Dates: start: 20230223, end: 20230223
  14. SOLU-MEDROL [Concomitant]
     Active Substance: METHYLPREDNISOLONE SODIUM SUCCINATE
     Dosage: 80 MILLIGRAM
     Route: 065
     Dates: start: 20230302, end: 20230302
  15. Paralen [Concomitant]
     Dosage: 1000 MILLIGRAM
     Route: 048
     Dates: start: 20230223, end: 20230223
  16. Paralen [Concomitant]
     Dosage: 1000 MILLIGRAM
     Route: 048
     Dates: start: 20230302, end: 20230302
  17. Paralen [Concomitant]
     Dosage: 1000 MILLIGRAM
     Route: 048
     Dates: start: 20230309, end: 20230309
  18. URSODIOL [Concomitant]
     Active Substance: URSODIOL
     Dosage: UNK
     Route: 065
     Dates: start: 20230202
  19. BISULEPIN [Concomitant]
     Active Substance: BISULEPIN
     Dosage: 2 MILLIGRAM
     Route: 048
     Dates: start: 20230223, end: 20230223
  20. BISULEPIN [Concomitant]
     Active Substance: BISULEPIN
     Dosage: 2 MILLIGRAM
     Route: 048
     Dates: start: 20230302, end: 20230302
  21. BISULEPIN [Concomitant]
     Active Substance: BISULEPIN
     Dosage: 2 MILLIGRAM
     Route: 048
     Dates: start: 20230309, end: 20230309
  22. SPIRONOLACTONE [Concomitant]
     Active Substance: SPIRONOLACTONE
     Dosage: UNK
     Route: 065
     Dates: start: 2021
  23. Vigantol [Concomitant]
     Dosage: UNK
     Route: 065
     Dates: start: 2010
  24. SERTRALINE HYDROCHLORIDE [Concomitant]
     Active Substance: SERTRALINE HYDROCHLORIDE
     Dosage: UNK
     Route: 065
     Dates: start: 2021
  25. CALCIUM CARBONATE [Concomitant]
     Active Substance: CALCIUM CARBONATE
     Dosage: UNK
     Route: 065
     Dates: start: 2010
  26. COTRIMOXAZOLE [Concomitant]
     Active Substance: SULFAMETHOXAZOLE\TRIMETHOPRIM
     Dosage: UNK
     Route: 065
     Dates: start: 2021
  27. QUETIAPINE FUMARATE [Concomitant]
     Active Substance: QUETIAPINE FUMARATE
     Dosage: UNK
     Route: 065
     Dates: start: 202210
  28. CONTROLOC [Concomitant]
     Active Substance: PANTOPRAZOLE SODIUM
     Dosage: UNK
     Route: 065
     Dates: start: 2021
  29. VALACYCLOVIR HYDROCHLORIDE [Concomitant]
     Active Substance: VALACYCLOVIR HYDROCHLORIDE
     Dosage: UNK
     Route: 065
     Dates: start: 2021

REACTIONS (2)
  - Neutropenia [Recovered/Resolved]
  - COVID-19 [Unknown]

NARRATIVE: CASE EVENT DATE: 20230227
